FAERS Safety Report 8351492-7 (Version None)
Quarter: 2012Q2

REPORT INFORMATION
  Report Type: 
  Country: None (occurrence: None)
  Receive Date: 20120510
  Receipt Date: 20120502
  Transmission Date: 20120825
  Serious: Yes (Other)
  Sender: FDA-Public Use
  Company Number: CHPA2012US005314

PATIENT
  Age: 87 Year
  Sex: Female

DRUGS (3)
  1. VOLTAREN [Suspect]
     Indication: ARTHRALGIA
     Dosage: UNK, BID
     Route: 061
     Dates: start: 20120321, end: 20120427
  2. PLAVIX [Concomitant]
  3. DRUG THERAPY NOS [Concomitant]
     Dosage: 1 SHOT, PER WEEK

REACTIONS (7)
  - PRESYNCOPE [None]
  - BLOOD CALCIUM DECREASED [None]
  - BLOOD POTASSIUM DECREASED [None]
  - WRONG TECHNIQUE IN DRUG USAGE PROCESS [None]
  - PALPITATIONS [None]
  - HEART RATE INCREASED [None]
  - OFF LABEL USE [None]
